FAERS Safety Report 17391987 (Version 2)
Quarter: 2020Q2

REPORT INFORMATION
  Report Type: Spontaneous
  Country: CZ (occurrence: CZ)
  Receive Date: 20200207
  Receipt Date: 20200521
  Transmission Date: 20200713
  Serious: Yes (Other)
  Sender: FDA-Public Use
  Company Number: CZ-ACCORD-171873

PATIENT
  Age: 30 Year
  Sex: Male

DRUGS (6)
  1. LAMOTRIGINE. [Suspect]
     Active Substance: LAMOTRIGINE
     Indication: IDIOPATHIC GENERALISED EPILEPSY
     Dosage: 100 MG PER DAY
  2. CLONAZEPAM. [Suspect]
     Active Substance: CLONAZEPAM
     Indication: IDIOPATHIC GENERALISED EPILEPSY
     Dosage: UNK 2-3 MG / DAILY
  3. CARBAMAZEPINE. [Suspect]
     Active Substance: CARBAMAZEPINE
     Indication: IDIOPATHIC GENERALISED EPILEPSY
     Dosage: 600 MG PER DAY
  4. PERAMPANEL [Concomitant]
     Active Substance: PERAMPANEL
  5. VALPROIC ACID. [Suspect]
     Active Substance: VALPROIC ACID
     Indication: IDIOPATHIC GENERALISED EPILEPSY
     Dosage: 2000 MG PER DAY
  6. LEVETIRACETAM. [Concomitant]
     Active Substance: LEVETIRACETAM

REACTIONS (13)
  - Osteopenia [Recovered/Resolved]
  - Depression [Recovered/Resolved]
  - Thermal burn [Recovered/Resolved]
  - Drug withdrawal syndrome [Unknown]
  - Loss of personal independence in daily activities [Recovered/Resolved]
  - Alopecia [Recovered/Resolved]
  - Tremor [Recovered/Resolved]
  - Treatment noncompliance [Unknown]
  - Drug ineffective [Unknown]
  - Drug dependence [Unknown]
  - Weight increased [Recovered/Resolved]
  - Insomnia [Recovered/Resolved]
  - Joint injury [Recovered/Resolved]
